FAERS Safety Report 13256587 (Version 4)
Quarter: 2017Q3

REPORT INFORMATION
  Report Type: Report from Study
  Country: GB (occurrence: GB)
  Receive Date: 20170221
  Receipt Date: 20170912
  Transmission Date: 20171127
  Serious: Yes (Other)
  Sender: FDA-Public Use
  Company Number: GB-BRISTOL-MYERS SQUIBB COMPANY-BMS-2017-004104

PATIENT
  Sex: Female

DRUGS (1)
  1. ABATACEPT [Suspect]
     Active Substance: ABATACEPT
     Indication: RHEUMATOID ARTHRITIS
     Dosage: 125 MG, QWK
     Route: 058
     Dates: start: 20140925

REACTIONS (7)
  - Colitis [Unknown]
  - Syringe issue [Unknown]
  - Drug dose omission [Unknown]
  - Adverse event [Unknown]
  - Drug ineffective [Unknown]
  - Infection [Unknown]
  - Pleurisy [Unknown]
